FAERS Safety Report 9611893 (Version 1)
Quarter: 2013Q4

REPORT INFORMATION
  Report Type: Report from Study
  Country: CA (occurrence: CA)
  Receive Date: 20131010
  Receipt Date: 20131010
  Transmission Date: 20140711
  Serious: Yes (Hospitalization, Disabling)
  Sender: FDA-Public Use
  Company Number: CA-JNJFOC-20131003007

PATIENT
  Age: 65 Year
  Sex: Female
  Weight: 61.5 kg

DRUGS (1)
  1. REMICADE [Suspect]
     Indication: ANKYLOSING SPONDYLITIS
     Route: 042
     Dates: start: 20060428

REACTIONS (2)
  - Herpes zoster [Not Recovered/Not Resolved]
  - Hospitalisation [Unknown]
